FAERS Safety Report 24662978 (Version 1)
Quarter: 2024Q4

REPORT INFORMATION
  Report Type: Spontaneous
  Country: CO (occurrence: CO)
  Receive Date: 20241126
  Receipt Date: 20241126
  Transmission Date: 20250115
  Serious: Yes (Death)
  Sender: BOEHRINGER INGELHEIM
  Company Number: CO-BoehringerIngelheim-2024-BI-064835

PATIENT
  Age: 86 Year
  Sex: Male

DRUGS (1)
  1. OFEV [Suspect]
     Active Substance: NINTEDANIB
     Indication: Interstitial lung disease
     Route: 048
     Dates: start: 20240829

REACTIONS (1)
  - Death [Fatal]

NARRATIVE: CASE EVENT DATE: 20241120
